FAERS Safety Report 7422046-1 (Version None)
Quarter: 2011Q2

REPORT INFORMATION
  Report Type: 
  Country: None (occurrence: None)
  Receive Date: 20110418
  Receipt Date: 20110408
  Transmission Date: 20111010
  Serious: Yes (Other)
  Sender: FDA-Public Use
  Company Number: US-AMGEN-USASP2011018998

PATIENT
  Age: 43 Year
  Sex: Female

DRUGS (7)
  1. HYDROXYCHLOROQUINE SULFATE [Concomitant]
     Dosage: 400 MG, QD
     Dates: start: 20001227
  2. CORTICOSTEROIDS [Concomitant]
  3. AZATHIOPRINE                       /00001502/ [Concomitant]
  4. DICLOFENAC SODIUM [Concomitant]
     Dosage: UNK
     Dates: end: 20030127
  5. ENBREL [Suspect]
     Indication: RHEUMATOID ARTHRITIS
     Dosage: 25 MG, 2 TIMES/WK
     Route: 058
     Dates: start: 20010824, end: 20030330
  6. HUMIRA [Concomitant]
     Dosage: 40 MG, 2 TIMES/WK
     Dates: start: 20030615, end: 20040721
  7. METHOTREXATE [Concomitant]
     Dosage: UNK
     Dates: end: 20020828

REACTIONS (4)
  - EOSINOPHILIA [None]
  - LUPUS-LIKE SYNDROME [None]
  - HYPERSENSITIVITY [None]
  - URTICARIA [None]
